FAERS Safety Report 8935804 (Version 3)
Quarter: 2012Q4

REPORT INFORMATION
  Report Type: 
  Country: JP (occurrence: JP)
  Receive Date: 20121130
  Receipt Date: 20121224
  Transmission Date: 20130627
  Serious: Yes (Other)
  Sender: FDA-Public Use
  Company Number: JP-ASTELLAS-2012US011609

PATIENT
  Age: 75 Year
  Sex: Female
  Weight: 42 kg

DRUGS (6)
  1. TARCEVA [Suspect]
     Indication: LUNG NEOPLASM MALIGNANT
     Dosage: 150 mg, UID/QD
     Route: 048
     Dates: start: 20121108, end: 201211
  2. TARCEVA [Suspect]
     Dosage: 100 mg, UID/QD
     Route: 048
     Dates: start: 20121120, end: 20121121
  3. ALFAROL [Concomitant]
     Indication: OSTEOPOROSIS
     Dosage: 0.25 ug, bid
     Route: 048
     Dates: start: 20110728
  4. CIMETIPARL [Concomitant]
     Indication: GASTRIC ULCER
     Dosage: 200 mg, bid
     Route: 048
     Dates: start: 20120214
  5. MAINTATE [Concomitant]
     Indication: HYPERTENSION
     Dosage: 2.5 mg, UID/QD
     Route: 048
  6. DIOVAN [Concomitant]
     Indication: HYPERTENSION
     Dosage: 80 mg, UID/QD
     Route: 048

REACTIONS (5)
  - Eosinophil count increased [Unknown]
  - Rash pruritic [Recovered/Resolved]
  - Blood urea abnormal [Not Recovered/Not Resolved]
  - Hepatic function abnormal [Unknown]
  - Pyrexia [Unknown]
